FAERS Safety Report 9180957 (Version 2)
Quarter: 2013Q2

REPORT INFORMATION
  Report Type: Report from Study
  Country: AU (occurrence: AU)
  Receive Date: 20130322
  Receipt Date: 20130408
  Transmission Date: 20140414
  Serious: Yes (Hospitalization)
  Sender: FDA-Public Use
  Company Number: PHHY2013AU027438

PATIENT
  Age: 49 Year
  Sex: Female

DRUGS (7)
  1. CLOZARIL [Suspect]
     Indication: SCHIZOPHRENIA
     Dosage: 800 MG, UNK
     Dates: start: 20060321, end: 20130310
  2. CLOZARIL [Suspect]
     Dosage: INCREASED DOSE BY 12.5 MG GRADUALLY
     Dates: start: 20130313
  3. CLOZARIL [Suspect]
     Dosage: 150 MG, PER DAY
     Route: 048
     Dates: start: 20130313
  4. OMEPRAZOLE [Concomitant]
     Indication: GASTROOESOPHAGEAL REFLUX DISEASE
     Dosage: 20 MG, (MANE)
     Route: 048
  5. ARIPIPRAZOLE [Concomitant]
     Indication: SCHIZOPHRENIA
     Dosage: 20 MG, (MANE)
     Route: 048
  6. VALPROATE SODIUM [Concomitant]
     Indication: MOOD ALTERED
     Dosage: 1 G, BID
     Route: 048
  7. ATORVASTATIN [Concomitant]
     Indication: BLOOD CHOLESTEROL INCREASED
     Dosage: 20 MG, (MANE)
     Route: 048

REACTIONS (6)
  - Psychiatric symptom [Recovering/Resolving]
  - Social avoidant behaviour [Recovering/Resolving]
  - Hostility [Recovering/Resolving]
  - Mental impairment [Recovering/Resolving]
  - Delusion [Recovering/Resolving]
  - Antipsychotic drug level decreased [Recovering/Resolving]
